FAERS Safety Report 4907732-7 (Version None)
Quarter: 2006Q1

REPORT INFORMATION
  Report Type: 
  Country: None (occurrence: None)
  Receive Date: 20060208
  Receipt Date: 20060208
  Transmission Date: 20060701
  Serious: Yes (Hospitalization)
  Sender: FDA-Public Use
  Company Number: None

PATIENT
  Age: 70 Year
  Sex: Male

DRUGS (8)
  1. IBUPROFEN [Suspect]
     Indication: PAIN
     Dosage: N/A (OTC USE)
  2. FESO4 [Concomitant]
  3. METOPROLOL [Concomitant]
  4. LISINOPRIL [Concomitant]
  5. OMEPRAZOLE [Concomitant]
  6. CITALOPRAM HYDROBROMIDE [Concomitant]
  7. ZOCOR [Concomitant]
  8. TRAMADOL [Concomitant]

REACTIONS (1)
  - GASTRITIS [None]
